FAERS Safety Report 8250375-0 (Version None)
Quarter: 2012Q2

REPORT INFORMATION
  Report Type: 
  Country: None (occurrence: None)
  Receive Date: 20120402
  Receipt Date: 20120321
  Transmission Date: 20120825
  Serious: Yes (Other)
  Sender: FDA-Public Use
  Company Number: US-ELI_LILLY_AND_COMPANY-US201202007975

PATIENT
  Sex: Female

DRUGS (8)
  1. COUMADIN [Concomitant]
     Dosage: 3 MG, UNK
  2. DOXEPIN HCL [Concomitant]
  3. VALIUM [Concomitant]
     Dosage: 2 MG, UNK
  4. BOTOX [Concomitant]
     Indication: HEADACHE
  5. ADCIRCA [Suspect]
     Dosage: 20 MG, UNK
  6. LASIX [Concomitant]
  7. ADCIRCA [Suspect]
     Indication: PULMONARY HYPERTENSION
     Dosage: 40 MG, UNK
     Dates: start: 20100101
  8. ALDACTONE [Concomitant]

REACTIONS (11)
  - FALL [None]
  - MUSCLE SPASMS [None]
  - PAIN [None]
  - PELVIC FRACTURE [None]
  - HEADACHE [None]
  - FATIGUE [None]
  - LACERATION [None]
  - MACULAR DEGENERATION [None]
  - SUDDEN HEARING LOSS [None]
  - WHEELCHAIR USER [None]
  - INTERNATIONAL NORMALISED RATIO ABNORMAL [None]
